FAERS Safety Report 12419658 (Version 3)
Quarter: 2016Q3

REPORT INFORMATION
  Report Type: Spontaneous
  Country: GB (occurrence: GB)
  Receive Date: 20160531
  Receipt Date: 20160714
  Transmission Date: 20161109
  Serious: Yes (Other)
  Sender: FDA-Public Use
  Company Number: GB-NOVOPROD-492939

PATIENT
  Age: 17 Year
  Sex: Female
  Weight: 66.4 kg

DRUGS (1)
  1. TRESIBA PENFILL [Suspect]
     Active Substance: INSULIN DEGLUDEC
     Indication: TYPE 1 DIABETES MELLITUS
     Dosage: 14 U, QD
     Route: 058
     Dates: start: 201601, end: 20160426

REACTIONS (2)
  - Oedema [Recovering/Resolving]
  - Peripheral swelling [Recovering/Resolving]

NARRATIVE: CASE EVENT DATE: 20160426
